FAERS Safety Report 4708149-0 (Version None)
Quarter: 2005Q2

REPORT INFORMATION
  Report Type: 
  Country: None (occurrence: None)
  Receive Date: 20050629
  Receipt Date: 20050511
  Transmission Date: 20051028
  Serious: No
  Sender: FDA-Public Use
  Company Number: 05P-163-0300262-00

PATIENT
  Age: 67 Year
  Sex: Male
  Weight: 150 kg

DRUGS (18)
  1. HUMIRA [Suspect]
     Indication: RHEUMATOID ARTHRITIS
     Dosage: 40 MG, 1 IN 2 WK, SUBCUTANEOUS;  40 MG, 1 IN 3 WK, SUBCUTANEOUS
     Route: 058
     Dates: start: 20041101, end: 20050428
  2. HUMIRA [Suspect]
     Indication: RHEUMATOID ARTHRITIS
     Dosage: 40 MG, 1 IN 2 WK, SUBCUTANEOUS;  40 MG, 1 IN 3 WK, SUBCUTANEOUS
     Route: 058
     Dates: start: 20050428
  3. METHOTREXATE [Concomitant]
  4. FUROSEMIDE [Concomitant]
  5. METOLAZONE [Concomitant]
  6. TERAZOSIN HCL [Concomitant]
  7. OMEPREZOLE [Concomitant]
  8. POTASSIUM CHLORIDE [Concomitant]
  9. ALLOPURINOL [Concomitant]
  10. LISINOPRIL [Concomitant]
  11. CANDESARTAN [Concomitant]
  12. CILEXETIL [Concomitant]
  13. FELODIPINE [Concomitant]
  14. HYDROXYCHLOROQUINE SULFATE [Concomitant]
  15. FOLIC ACID [Concomitant]
  16. COLESTIPOL [Concomitant]
  17. INSULIN GLARGINE [Concomitant]
  18. HUMULOG INSULIN [Concomitant]

REACTIONS (3)
  - BLISTER [None]
  - INFECTION [None]
  - OEDEMA PERIPHERAL [None]
